FAERS Safety Report 17679074 (Version 1)
Quarter: 2020Q2

REPORT INFORMATION
  Report Type: Spontaneous
  Country: US (occurrence: US)
  Receive Date: 20200416
  Receipt Date: 20200416
  Transmission Date: 20200714
  Serious: Yes (Hospitalization)
  Sender: FDA-Public Use
  Company Number: None

PATIENT
  Sex: Female

DRUGS (21)
  1. TALTZ [Suspect]
     Active Substance: IXEKIZUMAB
     Indication: PSORIATIC ARTHROPATHY
     Dosage: 1 PEN Q4WKS PO?
     Route: 058
  2. AMLODIPINE [Concomitant]
     Active Substance: AMLODIPINE BESYLATE
  3. AMOXICILLIN. [Concomitant]
     Active Substance: AMOXICILLIN
  4. CLONAZEPAM. [Concomitant]
     Active Substance: CLONAZEPAM
  5. DOXYCYCL HYC [Concomitant]
  6. LEVOFLOXACIN. [Concomitant]
     Active Substance: LEVOFLOXACIN
  7. LOSARTAN/HCT [Concomitant]
     Active Substance: HYDROCHLOROTHIAZIDE\LOSARTAN POTASSIUM
  8. METHYLPRED [Concomitant]
     Active Substance: METHYLPREDNISOLONE
  9. FAMOTIDINE. [Concomitant]
     Active Substance: FAMOTIDINE
  10. NYSTATIN. [Concomitant]
     Active Substance: NYSTATIN
  11. LEVOTHYROXIN [Concomitant]
     Active Substance: LEVOTHYROXINE
  12. FUROSEMIDE. [Concomitant]
     Active Substance: FUROSEMIDE
  13. OSELTAMIR [Concomitant]
     Active Substance: OSELTAMIVIR
  14. PANTOPRAZOLE [Concomitant]
     Active Substance: PANTOPRAZOLE
  15. PREDNISONE. [Concomitant]
     Active Substance: PREDNISONE
  16. ROSUVASTATIN. [Concomitant]
     Active Substance: ROSUVASTATIN
  17. VITAMIN D [Concomitant]
     Active Substance: VITAMIN D NOS
  18. CYANOCOBALAM [Concomitant]
     Active Substance: CYANOCOBALAMIN
  19. HYDROXYCHLOR [Concomitant]
     Active Substance: HYDROXYCHLOROQUINE
  20. METFORMIN [Concomitant]
     Active Substance: METFORMIN HYDROCHLORIDE
  21. SYNTHROID [Concomitant]
     Active Substance: LEVOTHYROXINE SODIUM

REACTIONS (2)
  - Lung disorder [None]
  - Pneumonia [None]
